FAERS Safety Report 11999851 (Version 1)
Quarter: 2016Q1

REPORT INFORMATION
  Report Type: Spontaneous
  Country: US (occurrence: US)
  Receive Date: 20160204
  Receipt Date: 20160204
  Transmission Date: 20160526
  Serious: No
  Sender: FDA-Public Use
  Company Number: US-BAYER-2016-020562

PATIENT
  Age: 40 Year
  Sex: Female
  Weight: 58.96 kg

DRUGS (1)
  1. ALEVE [Suspect]
     Active Substance: NAPROXEN SODIUM
     Indication: HEADACHE
     Dosage: 1 DF, PRN
     Route: 048
     Dates: start: 2010, end: 20160129

REACTIONS (2)
  - Drug ineffective [None]
  - Nausea [Recovered/Resolved]

NARRATIVE: CASE EVENT DATE: 20160129
